FAERS Safety Report 17529801 (Version 1)
Quarter: 2020Q1

REPORT INFORMATION
  Report Type: Spontaneous
  Country: US (occurrence: US)
  Receive Date: 20200311
  Receipt Date: 20200311
  Transmission Date: 20200409
  Serious: No
  Sender: FDA-Public Use
  Company Number: US-BRISTOL-MYERS SQUIBB COMPANY-BMS-2020-020918

PATIENT
  Sex: Female
  Weight: 50.34 kg

DRUGS (4)
  1. ELIQUIS [Suspect]
     Active Substance: APIXABAN
     Indication: MYOCARDIAL INFARCTION
     Dosage: 2.5 MILLIGRAM, BID
     Route: 048
     Dates: start: 20190628
  2. BABY ASPIRIN [Suspect]
     Active Substance: ASPIRIN
     Indication: PRODUCT USED FOR UNKNOWN INDICATION
     Route: 065
  3. BIOTIN [Concomitant]
     Active Substance: BIOTIN
     Indication: PRODUCT USED FOR UNKNOWN INDICATION
     Route: 065
  4. VITAMIN D NOS [Concomitant]
     Active Substance: VITAMIN D NOS
     Indication: PRODUCT USED FOR UNKNOWN INDICATION
     Route: 065

REACTIONS (7)
  - Balance disorder [Unknown]
  - Sensory disturbance [Unknown]
  - Off label use [Unknown]
  - Platelet count increased [Unknown]
  - Gait disturbance [Unknown]
  - Weight decreased [Unknown]
  - Rhinorrhoea [Unknown]
